FAERS Safety Report 4336808-0 (Version None)
Quarter: 2004Q2

REPORT INFORMATION
  Report Type: 
  Country: None (occurrence: None)
  Receive Date: 20040408
  Receipt Date: 20040330
  Transmission Date: 20050107
  Serious: Yes (Hospitalization)
  Sender: FDA-Public Use
  Company Number: ZONI001379

PATIENT
  Age: 25 Year
  Sex: Male

DRUGS (2)
  1. ZONEGRAN (ZONISAMIDE) [Suspect]
     Indication: CONVULSION
     Dosage: 300 MG DAILY ORAL
     Route: 048
     Dates: start: 20030701
  2. TRILEPTAL [Concomitant]

REACTIONS (3)
  - BODY TEMPERATURE INCREASED [None]
  - CONVULSION [None]
  - PNEUMONIA ASPIRATION [None]
